FAERS Safety Report 9680467 (Version 1)
Quarter: 2013Q4

REPORT INFORMATION
  Report Type: Spontaneous
  Country: US (occurrence: US)
  Receive Date: 20131111
  Receipt Date: 20131111
  Transmission Date: 20140711
  Serious: No
  Sender: FDA-Public Use
  Company Number: US-PFIZER INC-2013315372

PATIENT
  Age: 63 Year
  Sex: Male

DRUGS (4)
  1. SULFASALAZINE [Suspect]
     Dosage: UNK
  2. NIACIN [Suspect]
  3. CIPRO [Suspect]
  4. ZYRTEC [Suspect]

REACTIONS (1)
  - Drug hypersensitivity [Unknown]
